FAERS Safety Report 9113118 (Version 1)
Quarter: 2013Q1

REPORT INFORMATION
  Report Type: Spontaneous
  Country: DK (occurrence: DK)
  Receive Date: 20130211
  Receipt Date: 20130211
  Transmission Date: 20140127
  Serious: Yes (Hospitalization)
  Sender: FDA-Public Use
  Company Number: DK-SANOFI-AVENTIS-2013SA010006

PATIENT
  Sex: Male
  Weight: 80 kg

DRUGS (3)
  1. XATRAL [Suspect]
     Indication: BENIGN PROSTATIC HYPERPLASIA
     Route: 065
  2. QUETIAPINE [Suspect]
     Indication: PRODUCT USED FOR UNKNOWN INDICATION
     Dosage: FORM: 245
     Route: 048
     Dates: start: 201206, end: 201301
  3. ESCITALOPRAM [Suspect]
     Indication: DEPRESSION
     Route: 065

REACTIONS (1)
  - Urinary retention [Unknown]
